FAERS Safety Report 23587320 (Version 1)
Quarter: 2024Q1

REPORT INFORMATION
  Report Type: Spontaneous
  Country: US (occurrence: US)
  Receive Date: 20240301
  Receipt Date: 20240301
  Transmission Date: 20240409
  Serious: No
  Sender: FDA-Public Use
  Company Number: US-MYLANLABS-2024M1016985

PATIENT
  Sex: Female
  Weight: 67.288 kg

DRUGS (1)
  1. XANAX [Suspect]
     Active Substance: ALPRAZOLAM
     Indication: Nausea
     Dosage: 0.5 MILLIGRAM, BID
     Route: 048

REACTIONS (1)
  - Off label use [Unknown]
